FAERS Safety Report 13253066 (Version 5)
Quarter: 2017Q3

REPORT INFORMATION
  Report Type: Report from Study
  Country: JP (occurrence: JP)
  Receive Date: 20170220
  Receipt Date: 20170830
  Transmission Date: 20171127
  Serious: Yes (Death, Life-Threatening, Hospitalization, Disabling, Other)
  Sender: FDA-Public Use
  Company Number: PHJP2016JP017835

PATIENT
  Age: 59 Year
  Sex: Female

DRUGS (6)
  1. CRAVIT [Concomitant]
     Active Substance: LEVOFLOXACIN
     Indication: NON-SMALL CELL LUNG CANCER STAGE IV
     Dosage: 500 MG, UNK
     Route: 048
  2. FINIBAX [Concomitant]
     Active Substance: DORIPENEM MONOHYDRATE
     Indication: NON-SMALL CELL LUNG CANCER STAGE IV
     Dosage: 0.75 G, UNK
     Route: 065
  3. ZYKADIA [Suspect]
     Active Substance: CERITINIB
     Dosage: 600 MG, QD
     Route: 048
     Dates: start: 20160609, end: 20160609
  4. ZYKADIA [Suspect]
     Active Substance: CERITINIB
     Indication: NON-SMALL CELL LUNG CANCER STAGE IV
     Dosage: 750 MG, QD
     Route: 048
     Dates: start: 20160527, end: 20160608
  5. CRAVIT [Concomitant]
     Active Substance: LEVOFLOXACIN
     Dosage: 250 MG, UNK
     Route: 048
  6. ZYKADIA [Suspect]
     Active Substance: CERITINIB
     Dosage: 450 MG, QD
     Route: 048
     Dates: start: 20160610, end: 20160621

REACTIONS (13)
  - Pneumonia [Fatal]
  - Lymphangiosis carcinomatosa [Unknown]
  - Pulmonary alveolar haemorrhage [Fatal]
  - Malignant neoplasm progression [Not Recovered/Not Resolved]
  - Interstitial lung disease [Recovered/Resolved with Sequelae]
  - Non-small cell lung cancer stage IV [Not Recovered/Not Resolved]
  - Respiratory failure [Fatal]
  - Renal impairment [Not Recovered/Not Resolved]
  - Dyspnoea [Unknown]
  - Nausea [Recovering/Resolving]
  - Diarrhoea [Recovered/Resolved]
  - Decreased appetite [Unknown]
  - Vomiting [Recovered/Resolved]

NARRATIVE: CASE EVENT DATE: 20160601
